FAERS Safety Report 7947913 (Version 2)
Quarter: 2013Q2

REPORT INFORMATION
  Report Type: Spontaneous
  Country: FR (occurrence: FR)
  Receive Date: 20110517
  Receipt Date: 20130628
  Transmission Date: 20140414
  Serious: Yes (Death, Hospitalization)
  Sender: FDA-Public Use
  Company Number: FR-BRISTOL-MYERS SQUIBB COMPANY-15742133

PATIENT
  Age: 59 Year
  Sex: Male

DRUGS (15)
  1. APROVEL FILM-COATED TABS 75 MG [Suspect]
     Route: 048
  2. TRIATEC [Suspect]
     Route: 048
  3. PROGRAF [Suspect]
     Dosage: 1 CAPSULE
     Route: 048
  4. CELLCEPT [Suspect]
     Dosage: 2 TABLETS
     Route: 048
  5. TAHOR [Concomitant]
     Dosage: 1 FILM-COATED TABLET
     Route: 048
  6. ROCALTROL [Concomitant]
     Dosage: 1 CAPSULE
     Route: 048
  7. ZYLORIC [Concomitant]
     Dosage: 1 TABLET
  8. KARDEGIC [Concomitant]
     Dosage: POWDER FOR ORAL SOLUTION
     Route: 048
  9. SODIUM BICARBONATE [Concomitant]
  10. DELURSAN [Concomitant]
     Dosage: 1 FILM-COATED TABLET
     Route: 048
  11. UVEDOSE [Concomitant]
     Dosage: 1 AMPULE ORALLY
     Route: 048
  12. INIPOMP [Concomitant]
  13. LASILIX [Concomitant]
     Dosage: 1 SCORED TABLET
     Route: 048
  14. TIORFAN [Concomitant]
  15. SMECTA [Concomitant]

REACTIONS (4)
  - Pneumocystis jirovecii pneumonia [Fatal]
  - Respiratory failure [Fatal]
  - Renal failure acute [Recovered/Resolved]
  - Anuria [Recovering/Resolving]
